FAERS Safety Report 18064490 (Version 2)
Quarter: 2021Q2

REPORT INFORMATION
  Report Type: Spontaneous
  Country: US (occurrence: US)
  Receive Date: 20200724
  Receipt Date: 20210629
  Transmission Date: 20210717
  Serious: Yes (Hospitalization, Other)
  Sender: FDA-Public Use
  Company Number: US-JAZZ-2020-US-008291

PATIENT
  Age: 14 Year
  Sex: Male
  Weight: 119.3 kg

DRUGS (14)
  1. ERWINAZE [Suspect]
     Active Substance: ASPARAGINASE ERWINIA CHRYSANTHEMI
     Indication: ACUTE LYMPHOCYTIC LEUKAEMIA
     Dosage: 60000 UNITS (DAY 47)
     Route: 030
     Dates: start: 20200608, end: 20200608
  2. CYCLOPHOSPHAMIDE. [Suspect]
     Active Substance: CYCLOPHOSPHAMIDE
     Indication: ACUTE LYMPHOCYTIC LEUKAEMIA
     Dosage: 2400 MILLIGRAM (DAYS 1, 29)
     Route: 042
     Dates: start: 20200409
  3. VINCRISTINE [Suspect]
     Active Substance: VINCRISTINE
     Indication: ACUTE LYMPHOCYTIC LEUKAEMIA
     Dosage: 2 MILLIGRAM (DAYS15, 22,43,50)
     Route: 042
     Dates: start: 20200701
  4. GEMFIBROZIL. [Concomitant]
     Active Substance: GEMFIBROZIL
     Dosage: UNK
     Dates: start: 20200605, end: 20200713
  5. MERCAPTOPURINE. [Suspect]
     Active Substance: MERCAPTOPURINE
     Indication: ACUTE LYMPHOCYTIC LEUKAEMIA
     Dosage: 150 MILLIGRAM
     Route: 048
     Dates: start: 20200409
  6. METHOTREXATE. [Suspect]
     Active Substance: METHOTREXATE
     Dosage: 12230 MILLIGRAM (DAY1)
     Route: 042
     Dates: start: 20200701
  7. CYTARABINE. [Suspect]
     Active Substance: CYTARABINE
     Indication: ACUTE LYMPHOCYTIC LEUKAEMIA
     Dosage: 180 MILLIGRAM (DAYS 1?4,8?11, 29?32)
     Route: 042
     Dates: start: 20200409
  8. VINCRISTINE [Suspect]
     Active Substance: VINCRISTINE
     Dosage: 2 MILLIGRAM (DAY 15,22,43,50)
     Route: 042
     Dates: start: 20200423
  9. ERWINAZE [Suspect]
     Active Substance: ASPARAGINASE ERWINIA CHRYSANTHEMI
     Dosage: UNKNOWN DOSE
     Route: 065
     Dates: start: 20200612, end: 202006
  10. MERCAPTOPURINE. [Suspect]
     Active Substance: MERCAPTOPURINE
     Dosage: 50 MILLIGRAM (DAY 1?4)
     Route: 048
     Dates: start: 20200701
  11. ERWINAZE [Suspect]
     Active Substance: ASPARAGINASE ERWINIA CHRYSANTHEMI
     Dosage: UNKNOWN DOSE
     Route: 065
     Dates: start: 20200610, end: 202006
  12. OMEGA 3 FISH OIL [DOCOSAHEXAENOIC ACID;EICOSAPENTAENOIC ACID] [Concomitant]
     Active Substance: DOCONEXENT\ICOSAPENT
     Dosage: UNK
     Dates: start: 20200529
  13. ONDASETRON [ONDANSETRON] [Suspect]
     Active Substance: ONDANSETRON
     Dosage: UNK
     Dates: start: 20200605, end: 20200617
  14. METHOTREXATE. [Suspect]
     Active Substance: METHOTREXATE
     Indication: ACUTE LYMPHOCYTIC LEUKAEMIA
     Dosage: 15 MILLIGRAM
     Route: 037
     Dates: start: 20200409

REACTIONS (2)
  - Toxicity to various agents [Recovered/Resolved]
  - Drug clearance decreased [Recovered/Resolved]

NARRATIVE: CASE EVENT DATE: 20200608
